FAERS Safety Report 13112417 (Version 1)
Quarter: 2017Q1

REPORT INFORMATION
  Report Type: Spontaneous
  Country: LT (occurrence: LT)
  Receive Date: 20170113
  Receipt Date: 20170113
  Transmission Date: 20170428
  Serious: Yes (Life-Threatening, Hospitalization)
  Sender: FDA-Public Use
  Company Number: LT-TEVA-726787ACC

PATIENT
  Age: 53 Year
  Sex: Female
  Weight: 85 kg

DRUGS (10)
  1. BETALOC ZOK [Concomitant]
     Active Substance: METOPROLOL SUCCINATE
     Indication: HYPERTENSION
     Route: 048
  2. CISPLATIN TEVA [Suspect]
     Active Substance: CISPLATIN
     Route: 042
     Dates: start: 20161024, end: 20161121
  3. APREPITANT. [Concomitant]
     Active Substance: APREPITANT
     Indication: ANTIEMETIC SUPPORTIVE CARE
     Route: 048
     Dates: start: 20161121
  4. TRAMADOL. [Concomitant]
     Active Substance: TRAMADOL
     Indication: PAIN
     Route: 048
  5. ALPRAZOLAM. [Concomitant]
     Active Substance: ALPRAZOLAM
     Indication: ANXIETY DISORDER
     Route: 048
  6. FENTANYL. [Concomitant]
     Active Substance: FENTANYL
     Indication: PAIN
     Dosage: 75 MICROG/HOUR, PLASTER
     Route: 062
  7. MANITOL [Concomitant]
     Dosage: 1000 ML 10 PERCENT
     Dates: start: 20161121
  8. DEXAMETASON [Concomitant]
     Active Substance: DEXAMETHASONE
     Indication: PREMEDICATION
     Dates: start: 20161120
  9. ONDANSETRON [Concomitant]
     Active Substance: ONDANSETRON
     Indication: ANTIEMETIC SUPPORTIVE CARE
     Dates: start: 20161121
  10. TIANEPTINE [Concomitant]
     Active Substance: TIANEPTINE
     Indication: DEPRESSION
     Route: 048

REACTIONS (3)
  - Brain death [Recovering/Resolving]
  - Nausea [Unknown]
  - Malaise [Unknown]

NARRATIVE: CASE EVENT DATE: 20161121
